FAERS Safety Report 23298672 (Version 1)
Quarter: 2023Q4

REPORT INFORMATION
  Report Type: Report from Study
  Country: CA (occurrence: CA)
  Receive Date: 20231214
  Receipt Date: 20231214
  Transmission Date: 20240110
  Serious: Yes (Other)
  Sender: FDA-Public Use
  Company Number: CA-Merck Healthcare KGaA-2023492394

PATIENT
  Sex: Female

DRUGS (2)
  1. LUVERIS [Suspect]
     Active Substance: LUTROPIN ALFA
     Indication: Product used for unknown indication
     Dosage: VIAL
     Dates: start: 20231202
  2. GONAL-F [Suspect]
     Active Substance: FOLLITROPIN
     Indication: Product used for unknown indication

REACTIONS (4)
  - Muscle spasms [Unknown]
  - Vaginal haemorrhage [Unknown]
  - Adnexal torsion [Unknown]
  - Ovarian hyperstimulation syndrome [Unknown]
